FAERS Safety Report 9243681 (Version 2)
Quarter: 2013Q2

REPORT INFORMATION
  Report Type: Spontaneous
  Country: AU (occurrence: AU)
  Receive Date: 20130422
  Receipt Date: 20130502
  Transmission Date: 20140414
  Serious: Yes (Disabling)
  Sender: FDA-Public Use
  Company Number: AU-009507513-1304AUS007347

PATIENT
  Age: 67 Year
  Sex: Male
  Weight: 80 kg

DRUGS (1)
  1. SAPHRIS [Suspect]
     Dosage: 10 MG, BID
     Route: 048
     Dates: start: 20130117, end: 20130117

REACTIONS (2)
  - Burning sensation [Recovered/Resolved]
  - Dysgeusia [Recovered/Resolved]
